FAERS Safety Report 5960079-2 (Version None)
Quarter: 2008Q4

REPORT INFORMATION
  Report Type: 
  Country: None (occurrence: None)
  Receive Date: 20081119
  Receipt Date: 20081119
  Transmission Date: 20090506
  Serious: Yes (Life-Threatening)
  Sender: FDA-Public Use
  Company Number: None

PATIENT
  Age: 66 Year
  Sex: Female
  Weight: 130 kg

DRUGS (13)
  1. HEPARIN [Suspect]
     Indication: THROMBOSIS
     Dosage: 1200 UNITS/HR IV
     Route: 042
     Dates: start: 20080826, end: 20080830
  2. LANSOPRAZOLE [Concomitant]
  3. ZOCOR [Concomitant]
  4. INSULIN [Concomitant]
  5. DOCUSATE [Concomitant]
  6. SENNA [Concomitant]
  7. ESCITALOPRAM [Concomitant]
  8. CEFTRIAXONE [Concomitant]
  9. GABAPENTIN [Concomitant]
  10. METRONIDAZOLE [Concomitant]
  11. CLONAZEPAM [Concomitant]
  12. SEVELAMER [Concomitant]
  13. HYDROMORPHONE HCL [Concomitant]

REACTIONS (2)
  - PLATELET COUNT DECREASED [None]
  - PLATELET COUNT INCREASED [None]
